FAERS Safety Report 19642542 (Version 2)
Quarter: 2021Q4

REPORT INFORMATION
  Report Type: Spontaneous
  Country: CA (occurrence: CA)
  Receive Date: 20210731
  Receipt Date: 20211130
  Transmission Date: 20220303
  Serious: Yes (Death)
  Sender: FDA-Public Use
  Company Number: CA-DRREDDYS-SPO/CAN/21/0138422

PATIENT
  Age: 32 Year
  Sex: Female

DRUGS (1)
  1. AZACITIDINE [Suspect]
     Active Substance: AZACITIDINE
     Indication: Acute myeloid leukaemia
     Dosage: 100MG/VIAL
     Route: 051
     Dates: start: 20210406

REACTIONS (1)
  - Death [Fatal]
